FAERS Safety Report 7669149-4 (Version None)
Quarter: 2011Q3

REPORT INFORMATION
  Report Type: 
  Country: None (occurrence: None)
  Receive Date: 20110808
  Receipt Date: 20110725
  Transmission Date: 20111222
  Serious: Yes (Hospitalization)
  Sender: FDA-Public Use
  Company Number: PHHY2011US65587

PATIENT
  Sex: Female
  Weight: 61.2 kg

DRUGS (1)
  1. EXJADE [Suspect]
     Indication: SICKLE CELL ANAEMIA
     Dosage: 1500 MG, UNK
     Route: 048
     Dates: start: 20060817

REACTIONS (3)
  - PYELONEPHRITIS [None]
  - PYREXIA [None]
  - DYSURIA [None]
